FAERS Safety Report 9026342 (Version 1)
Quarter: 2013Q1

REPORT INFORMATION
  Report Type: Spontaneous
  Country: ES (occurrence: ES)
  Receive Date: 20130123
  Receipt Date: 20130123
  Transmission Date: 20140127
  Serious: Yes (Hospitalization, Other)
  Sender: FDA-Public Use
  Company Number: PHHY2013ES005491

PATIENT
  Age: 59 Year
  Sex: Female

DRUGS (8)
  1. EXTAVIA [Suspect]
     Indication: MULTIPLE SCLEROSIS
     Dosage: 0.25 MG, UNK
     Route: 058
     Dates: start: 201206, end: 201211
  2. TARDYFERON [Concomitant]
  3. AMANTADINE [Concomitant]
  4. OMEPRAZOLE [Concomitant]
  5. CELECOXIB [Concomitant]
  6. BETAHISTINE [Concomitant]
  7. CHONDROITIN SULFATE [Concomitant]
  8. DULCO-LAXO [Concomitant]

REACTIONS (1)
  - Rectal adenocarcinoma [Unknown]
